FAERS Safety Report 24359971 (Version 1)
Quarter: 2024Q3

REPORT INFORMATION
  Report Type: Spontaneous
  Country: IN (occurrence: IN)
  Receive Date: 20240925
  Receipt Date: 20240925
  Transmission Date: 20241017
  Serious: Yes (Other)
  Sender: STRIDES
  Company Number: IN-STRIDES ARCOLAB LIMITED-2024SP012189

PATIENT
  Sex: Female

DRUGS (20)
  1. TOPIRAMATE [Suspect]
     Active Substance: TOPIRAMATE
     Indication: Migraine
     Dosage: 100 MILLIGRAM
     Route: 065
     Dates: start: 202203
  2. TOPIRAMATE [Suspect]
     Active Substance: TOPIRAMATE
     Dosage: 100 MILLIGRAM
     Route: 065
     Dates: start: 202207
  3. IBUPROFEN [Suspect]
     Active Substance: IBUPROFEN
     Indication: Migraine
     Dosage: 400 MILLIGRAM, (4-5 DAYS/MONTH)
     Route: 065
  4. DICLOFENAC [Suspect]
     Active Substance: DICLOFENAC
     Indication: Migraine
     Dosage: 100 MILLIGRAM
     Route: 065
  5. NAPROXEN [Suspect]
     Active Substance: NAPROXEN
     Indication: Migraine
     Dosage: 500 MILLIGRAM
     Route: 065
     Dates: start: 202201
  6. NAPROXEN [Suspect]
     Active Substance: NAPROXEN
     Dosage: UNK
     Route: 065
     Dates: start: 202203
  7. CYPROHEPTADINE [Suspect]
     Active Substance: CYPROHEPTADINE\CYPROHEPTADINE HYDROCHLORIDE
     Indication: Serotonin syndrome
     Dosage: 6 MILLIGRAM, TID
     Route: 065
  8. CYPROHEPTADINE [Suspect]
     Active Substance: CYPROHEPTADINE\CYPROHEPTADINE HYDROCHLORIDE
     Dosage: UNK, REDUCED DOSE
     Route: 065
  9. CYPROHEPTADINE [Suspect]
     Active Substance: CYPROHEPTADINE\CYPROHEPTADINE HYDROCHLORIDE
     Dosage: UNK, GRADUALLY TAPERED OFF OVER 4?WEEKS.
     Route: 065
  10. AMITRIPTYLINE [Suspect]
     Active Substance: AMITRIPTYLINE
     Indication: Migraine
     Dosage: 50 MILLIGRAM
     Route: 065
  11. VENLAFAXINE [Suspect]
     Active Substance: VENLAFAXINE HYDROCHLORIDE
     Indication: Migraine
     Dosage: 75 MILLIGRAM
     Route: 065
     Dates: start: 2022
  12. PROPRANOLOL [Suspect]
     Active Substance: PROPRANOLOL HYDROCHLORIDE
     Indication: Migraine
     Dosage: 40 MILLIGRAM
     Route: 065
  13. SUMATRIPTAN [Suspect]
     Active Substance: SUMATRIPTAN\SUMATRIPTAN SUCCINATE
     Indication: Migraine
     Dosage: 50 MILLIGRAM, 8-10 DAYS/MONTH
     Route: 065
     Dates: start: 202201
  14. SUMATRIPTAN [Suspect]
     Active Substance: SUMATRIPTAN\SUMATRIPTAN SUCCINATE
     Dosage: UNK
     Route: 065
     Dates: start: 202203
  15. FLUNARIZINE [Suspect]
     Active Substance: FLUNARIZINE
     Indication: Migraine
     Dosage: 10 MILLIGRAM
     Route: 065
     Dates: start: 2022
  16. NORTRIPTYLINE [Suspect]
     Active Substance: NORTRIPTYLINE
     Indication: Migraine
     Dosage: 20 MILLIGRAM
     Route: 065
     Dates: start: 202203
  17. ACETAMINOPHEN\TRAMADOL [Suspect]
     Active Substance: ACETAMINOPHEN\TRAMADOL
     Indication: Migraine
     Dosage: UNK
     Route: 065
     Dates: start: 202203
  18. VALPROATE [Suspect]
     Active Substance: VALPROIC ACID
     Indication: Migraine
     Dosage: 1000 MILLIGRAM
     Route: 065
     Dates: start: 202207
  19. VALPROATE SODIUM [Suspect]
     Active Substance: VALPROATE SODIUM
     Indication: Migraine
     Dosage: 1000 MILLIGRAM
     Route: 065
  20. DOTHIEPIN [Suspect]
     Active Substance: DOTHIEPIN\DOTHIEPIN HYDROCHLORIDE
     Indication: Migraine
     Dosage: UNK
     Route: 065

REACTIONS (5)
  - Serotonin syndrome [Recovered/Resolved]
  - Rebound effect [Recovered/Resolved]
  - Drug ineffective [Unknown]
  - Sedation [Unknown]
  - Off label use [Unknown]
